FAERS Safety Report 8456981 (Version 3)
Quarter: 2013Q3

REPORT INFORMATION
  Report Type: Spontaneous
  Country: JP (occurrence: JP)
  Receive Date: 20120313
  Receipt Date: 20130705
  Transmission Date: 20140515
  Serious: Yes (Other)
  Sender: FDA-Public Use
  Company Number: PHHY2011JP108113

PATIENT
  Age: 39 Year
  Sex: Female

DRUGS (6)
  1. TASIGNA [Suspect]
     Indication: CHRONIC MYELOID LEUKAEMIA
     Dosage: 600 MG, DAILY
     Route: 048
     Dates: start: 20111013, end: 20111201
  2. TASIGNA [Suspect]
     Dosage: 300 MG, DAILY
     Route: 048
     Dates: start: 20111201, end: 20120126
  3. LASIX [Concomitant]
     Indication: OEDEMA
     Dosage: 20 MG, UNK
     Dates: start: 20101209
  4. ALDACTONE [Concomitant]
     Indication: OEDEMA
     Dosage: 25 MG, UNK
     Dates: start: 20110407
  5. LAC B [Concomitant]
     Indication: DIARRHOEA
     Dates: start: 20101209
  6. ALBUMIN TANNATE [Concomitant]
     Indication: DIARRHOEA
     Dosage: 3 G, UNK
     Dates: start: 20101209

REACTIONS (7)
  - Chronic myeloid leukaemia [Unknown]
  - Malignant neoplasm progression [Unknown]
  - Ventricular extrasystoles [Recovering/Resolving]
  - Supraventricular extrasystoles [Recovering/Resolving]
  - Pruritus [Recovering/Resolving]
  - Diarrhoea [Not Recovered/Not Resolved]
  - Malaise [Unknown]
